FAERS Safety Report 4932891-X (Version None)
Quarter: 2006Q1

REPORT INFORMATION
  Report Type: 
  Country: None (occurrence: None)
  Receive Date: 20060306
  Receipt Date: 20060223
  Transmission Date: 20060701
  Serious: Yes (Other)
  Sender: FDA-Public Use
  Company Number: DE-JNJFOC-20060205725

PATIENT
  Sex: Female
  Weight: 68 kg

DRUGS (2)
  1. SEMPERA [Suspect]
     Indication: ASPERGILLOSIS
     Route: 048
     Dates: start: 20051122, end: 20051126
  2. HEPARIN SODIUM [Suspect]
     Indication: THROMBOSIS PROPHYLAXIS
     Dates: start: 20051102, end: 20051116

REACTIONS (1)
  - THROMBOCYTOPENIA [None]
